FAERS Safety Report 6608119-1 (Version None)
Quarter: 2010Q1

REPORT INFORMATION
  Report Type: 
  Country: None (occurrence: None)
  Receive Date: 20100301
  Receipt Date: 20100222
  Transmission Date: 20100710
  Serious: Yes (Death)
  Sender: FDA-Public Use
  Company Number: CHPA2010US03757

PATIENT
  Age: 25 Year
  Sex: Female

DRUGS (7)
  1. ACETYLSALICYLIC ACID SRT [Suspect]
     Dosage: UNK, UNK
     Route: 048
  2. RISPERIDONE [Concomitant]
  3. METFORMIN HYDROCHLORIDE [Concomitant]
  4. GLIPIZIDE [Concomitant]
  5. ATENOLOL [Concomitant]
  6. CLONAZEPAM [Concomitant]
  7. LEVOTHYROXINE [Concomitant]

REACTIONS (7)
  - ATRIOVENTRICULAR BLOCK COMPLETE [None]
  - CARDIAC ARREST [None]
  - COMA [None]
  - COMPLETED SUICIDE [None]
  - FEELING HOT [None]
  - RESUSCITATION [None]
  - UNRESPONSIVE TO STIMULI [None]
